FAERS Safety Report 10705018 (Version 4)
Quarter: 2015Q3

REPORT INFORMATION
  Report Type: Report from Study
  Country: BR (occurrence: BR)
  Receive Date: 20150112
  Receipt Date: 20150803
  Transmission Date: 20151125
  Serious: Yes (Hospitalization)
  Sender: FDA-Public Use
  Company Number: PHHY2015BR002471

PATIENT
  Sex: Male

DRUGS (8)
  1. CIPROFLOXACINA [Concomitant]
     Active Substance: CIPROFLOXACIN
     Indication: PRODUCT USED FOR UNKNOWN INDICATION
     Route: 048
  2. DORNASE ALFA [Concomitant]
     Active Substance: DORNASE ALFA
     Indication: SECRETION DISCHARGE
     Dosage: 1 DF (1 FLASK), QD (PER DAY)
     Route: 065
     Dates: start: 1994
  3. PANCREATIC ENZYMES [Concomitant]
     Active Substance: UNSPECIFIED INGREDIENT
     Indication: PANCREATIC DISORDER
     Dosage: 30 DF, QD
     Route: 048
     Dates: start: 1994
  4. BEROTEC [Concomitant]
     Active Substance: FENOTEROL HYDROBROMIDE
     Indication: CYSTIC FIBROSIS
     Dosage: UNK, TID
     Route: 055
  5. ZOTEON PODHALER [Suspect]
     Active Substance: TOBRAMYCIN
     Indication: CYSTIC FIBROSIS
     Dosage: 28 MG, UNK
     Route: 055
     Dates: start: 2014
  6. PREDNISOLONA//PREDNISOLONE [Concomitant]
     Indication: CYSTIC FIBROSIS
     Dosage: 1 DF (20 MG), QD
     Route: 048
     Dates: start: 20150106
  7. SALINE [Concomitant]
     Active Substance: SODIUM CHLORIDE
     Indication: CYSTIC FIBROSIS
     Dosage: UNK, TID
     Route: 055
     Dates: start: 2009
  8. FLOXACIN [Concomitant]
     Active Substance: NORFLOXACIN
     Indication: PRODUCT USED FOR UNKNOWN INDICATION
     Dosage: 1 DF (500 MG), QD
     Route: 048
     Dates: start: 20150106

REACTIONS (5)
  - Increased bronchial secretion [Recovering/Resolving]
  - Bacterial infection [Unknown]
  - Cystic fibrosis [Unknown]
  - Dyspnoea [Recovering/Resolving]
  - Weight decreased [Recovering/Resolving]
